FAERS Safety Report 22007754 (Version 3)
Quarter: 2023Q2

REPORT INFORMATION
  Report Type: Report from Study
  Country: US (occurrence: US)
  Receive Date: 20230218
  Receipt Date: 20230501
  Transmission Date: 20230722
  Serious: No
  Sender: FDA-Public Use
  Company Number: US-002147023-NVSC2023US037396

PATIENT
  Age: 72 Year
  Sex: Female

DRUGS (2)
  1. LEQVIO [Suspect]
     Active Substance: INCLISIRAN SODIUM
     Indication: Product used for unknown indication
     Dosage: FIRST INJECTION
     Route: 058
     Dates: start: 202212
  2. LEQVIO [Suspect]
     Active Substance: INCLISIRAN SODIUM
     Dosage: SECOND INJECTION
     Route: 058
     Dates: start: 20230314

REACTIONS (6)
  - Gout [Recovered/Resolved]
  - Pain in extremity [Unknown]
  - Blood cholesterol increased [Unknown]
  - Hypoaesthesia [Recovering/Resolving]
  - Weight increased [Unknown]
  - Poor quality sleep [Unknown]

NARRATIVE: CASE EVENT DATE: 20230316
